FAERS Safety Report 4829269-6 (Version None)
Quarter: 2005Q4

REPORT INFORMATION
  Report Type: 
  Country: None (occurrence: None)
  Receive Date: 20051116
  Receipt Date: 20051108
  Transmission Date: 20060501
  Serious: Yes (Hospitalization)
  Sender: FDA-Public Use
  Company Number: US-GLAXOSMITHKLINE-A0581465A

PATIENT
  Age: 89 Year
  Sex: Female

DRUGS (7)
  1. DIGOXIN [Suspect]
     Indication: ATRIAL FIBRILLATION
     Route: 048
  2. DIGIBIND [Suspect]
     Indication: THERAPEUTIC AGENT TOXICITY
     Dosage: 190MG SINGLE DOSE
     Route: 042
     Dates: start: 20051103, end: 20051103
  3. WARFARIN [Concomitant]
  4. LISINOPRIL [Concomitant]
  5. DITROPAN [Concomitant]
  6. ESTRADIOL INJ [Concomitant]
  7. PREDNISONE [Concomitant]

REACTIONS (5)
  - BLOOD PRESSURE INCREASED [None]
  - CONFUSIONAL STATE [None]
  - DIZZINESS [None]
  - DRUG INEFFECTIVE [None]
  - THERAPEUTIC AGENT TOXICITY [None]
